FAERS Safety Report 24635676 (Version 1)
Quarter: 2024Q4

REPORT INFORMATION
  Report Type: Spontaneous
  Country: FR (occurrence: FR)
  Receive Date: 20241119
  Receipt Date: 20241119
  Transmission Date: 20250115
  Serious: Yes (Other)
  Sender: NOVARTIS
  Company Number: FR-002147023-NVSC2024FR220811

PATIENT
  Sex: Female

DRUGS (1)
  1. KESIMPTA [Suspect]
     Active Substance: OFATUMUMAB
     Indication: Product used for unknown indication
     Dosage: UNK UNK, QMO
     Route: 065
     Dates: start: 202307

REACTIONS (9)
  - Pneumonia [Unknown]
  - Rhinitis [Unknown]
  - Immunoglobulins decreased [Unknown]
  - Myalgia [Unknown]
  - Pyrexia [Unknown]
  - Alopecia [Unknown]
  - Acne [Unknown]
  - Illness [Not Recovered/Not Resolved]
  - Bone pain [Unknown]
